FAERS Safety Report 24107798 (Version 1)
Quarter: 2024Q3

REPORT INFORMATION
  Report Type: Report from Study
  Country: US (occurrence: US)
  Receive Date: 20240718
  Receipt Date: 20240718
  Transmission Date: 20241016
  Serious: Yes (Disabling, Other)
  Sender: AMGEN
  Company Number: US-HORIZON THERAPEUTICS-HZN-2021-006847

PATIENT
  Age: 76 Year
  Sex: Male
  Weight: 67.13 kg

DRUGS (64)
  1. TEPEZZA [Suspect]
     Active Substance: TEPROTUMUMAB-TRBW
     Indication: Endocrine ophthalmopathy
     Dosage: 770 MILLIGRAM (FIRST INFUSION)
     Route: 042
     Dates: start: 20210819
  2. TEPEZZA [Suspect]
     Active Substance: TEPROTUMUMAB-TRBW
     Indication: Diplopia
     Dosage: 1572 MILLIGRAM (SECOND INFUSION)
     Route: 042
     Dates: start: 20210909
  3. TEPEZZA [Suspect]
     Active Substance: TEPROTUMUMAB-TRBW
     Dosage: 1572 MILLIGRAM (THIRD INFUSION)
     Route: 042
     Dates: start: 20210930
  4. TEPEZZA [Suspect]
     Active Substance: TEPROTUMUMAB-TRBW
     Dosage: 1572 MILLIGRAM (FOURTH INFUSION)
     Route: 042
     Dates: start: 20211021
  5. TEPEZZA [Suspect]
     Active Substance: TEPROTUMUMAB-TRBW
     Dosage: 1482 MILLIGRAM (FIFTH INFUSION)
     Route: 042
     Dates: start: 20211111
  6. TEPEZZA [Suspect]
     Active Substance: TEPROTUMUMAB-TRBW
     Dosage: 1480 MILLIGRAM (SIXTH INFUSION)
     Route: 042
     Dates: start: 20211202
  7. TEPEZZA [Suspect]
     Active Substance: TEPROTUMUMAB-TRBW
     Dosage: 1480 MILLIGRAM (SEVENTH INFUSION)
     Route: 042
     Dates: start: 20211223
  8. ASPIRIN [Concomitant]
     Active Substance: ASPIRIN
     Dosage: EVERY DAY
     Route: 048
  9. DIOVAN [Concomitant]
     Active Substance: VALSARTAN
     Route: 048
  10. LEVOTHYROXINE SODIUM [Concomitant]
     Active Substance: LEVOTHYROXINE SODIUM
  11. PREDNISONE [Concomitant]
     Active Substance: PREDNISONE
     Dosage: 4 TABLETS EVERY DAY
     Route: 048
  12. ATORVASTATIN [Concomitant]
     Active Substance: ATORVASTATIN
     Dosage: 40 MILLIGRAM
  13. BACITRACIN [Concomitant]
     Active Substance: BACITRACIN
     Dosage: 500 UNIT/GRAM
  14. CHLORHEXIDINE [Concomitant]
     Active Substance: CHLORHEXIDINE
     Dosage: UNK
  15. EPHEDRINE [Concomitant]
     Active Substance: EPHEDRINE
     Dosage: 50 MG/ML
  16. GLYCOPYRROLATE [Concomitant]
     Active Substance: GLYCOPYRROLATE
     Dosage: 0.2 MG/ML
  17. ISOLYTE S [Concomitant]
     Active Substance: MAGNESIUM CHLORIDE\POTASSIUM CHLORIDE\SODIUM ACETATE\SODIUM CHLORIDE\SODIUM GLUCONATE
     Dosage: UNK
  18. LATANOPROST [Concomitant]
     Active Substance: LATANOPROST
     Dosage: UNK
  19. LIDOCAINE [Concomitant]
     Active Substance: LIDOCAINE
     Dosage: 100 MG/5ML
  20. PHENYLEPHRINE HYDROCHLORIDE [Concomitant]
     Active Substance: PHENYLEPHRINE HYDROCHLORIDE
     Dosage: 10 MG/ML
  21. PROPOFOL [Concomitant]
     Active Substance: PROPOFOL
     Dosage: 10 MG/ML
  22. CALCIUM CHLORIDE\POTASSIUM CHLORIDE\SODIUM LACTATE [Concomitant]
     Active Substance: CALCIUM CHLORIDE\POTASSIUM CHLORIDE\SODIUM LACTATE
     Dosage: 1000 MILLILITER
  23. SODIUM CHLORIDE [Concomitant]
     Active Substance: SODIUM CHLORIDE
     Dosage: 1000 MILLILITER
  24. STERILE WATER [Concomitant]
     Active Substance: WATER
     Dosage: 1 LITER
  25. CALCIUM [Concomitant]
     Active Substance: CALCIUM
  26. ACETAMINOPHEN [Concomitant]
     Active Substance: ACETAMINOPHEN
     Dosage: 10MG/ML
  27. SUCCINYLCHOLINE [Concomitant]
     Active Substance: SUCCINYLCHOLINE
     Dosage: 20 MG/ML
  28. CEFAZOLIN [Concomitant]
     Active Substance: CEFAZOLIN
     Dosage: 1 GRAM
  29. ONDANSETRON [Concomitant]
     Active Substance: ONDANSETRON
     Dosage: 4 MG/2ML
  30. FENTANYL [Concomitant]
     Active Substance: FENTANYL\FENTANYL CITRATE
     Dosage: 50 MEG/ML
  31. METHYLENE BLUE [Concomitant]
     Active Substance: METHYLENE BLUE
     Dosage: 50 MG/10ML
  32. FOLIC ACID [Concomitant]
     Active Substance: FOLIC ACID
     Dosage: 1 MILLIGRAM
  33. CALCIUM CHLORIDE [Concomitant]
     Active Substance: CALCIUM CHLORIDE
     Dosage: 10 PERCENT SOLUTION
  34. SUGAMMADEX [Concomitant]
     Active Substance: SUGAMMADEX
     Dosage: 500 MG/5ML
  35. DEXAMETHASONE [Concomitant]
     Active Substance: DEXAMETHASONE
     Dosage: 4 MG/ML
  36. HYDROMORPHONE [Concomitant]
     Active Substance: HYDROMORPHONE
     Dosage: 2 MG/ML
  37. METHYLPREDNISOLONE [Concomitant]
     Active Substance: METHYLPREDNISOLONE
     Dosage: 125 MILLIGRAM
  38. AMINOCAPROIC ACID [Concomitant]
     Active Substance: AMINOCAPROIC ACID
     Dosage: 250 MG/ML
  39. DEXMEDETOMIDINE [Concomitant]
     Active Substance: DEXMEDETOMIDINE
  40. DOCUSATE SODIUM [Concomitant]
     Active Substance: DOCUSATE SODIUM
     Dosage: 100 MILLIGRAM
  41. ETOMIDATE [Concomitant]
     Active Substance: ETOMIDATE
  42. FAMOTIDINE [Concomitant]
     Active Substance: FAMOTIDINE
     Dosage: 20 MILLIGRAM
  43. GABAPENTIN [Concomitant]
     Active Substance: GABAPENTIN
     Dosage: 100 MILLIGRAM
  44. METOPROLOL [Concomitant]
     Active Substance: METOPROLOL
     Dosage: 25 MILLIGRAM
  45. MUPIROCIN [Concomitant]
     Active Substance: MUPIROCIN
     Dosage: 1 GRAM
  46. NITROGLYCERIN [Concomitant]
     Active Substance: NITROGLYCERIN
  47. NOREPINEPHRINE [Concomitant]
     Active Substance: NOREPINEPHRINE\NOREPINEPHRINE BITARTRATE
  48. ROCURONIUM [Concomitant]
     Active Substance: ROCURONIUM BROMIDE
     Dosage: 50 MG/5ML
  49. SENNA [Concomitant]
     Active Substance: SENNA LEAF\SENNOSIDES\SENNOSIDES A AND B
     Dosage: 8.6 MILLIGRAM
  50. SODIUM BICARBONATE [Concomitant]
     Active Substance: SODIUM BICARBONATE
  51. DOBUTAMINE [Concomitant]
     Active Substance: DOBUTAMINE HYDROCHLORIDE
     Dosage: 2 MG/ML
  52. HEPARIN AL [Concomitant]
  53. MIDAZOLAM [Concomitant]
     Active Substance: MIDAZOLAM
     Dosage: 5 MG/SML
  54. PROTAMINE [Concomitant]
     Active Substance: PROTAMINE
     Dosage: 10 MG/ML
  55. VANCOMYCIN [Concomitant]
     Active Substance: VANCOMYCIN
  56. MAGNESIUM SULFATE [Concomitant]
     Active Substance: MAGNESIUM SULFATE\MAGNESIUM SULFATE HEPTAHYDRATE
  57. ASPIRIN [Concomitant]
     Active Substance: ASPIRIN
     Dosage: 81 MILLIGRAM
  58. COLCHICINE [Concomitant]
     Active Substance: COLCHICINE
  59. INSULIN LISPRO [Concomitant]
     Active Substance: INSULIN LISPRO
  60. FUROSEMIDE [Concomitant]
     Active Substance: FUROSEMIDE
  61. AMIODARONE [Concomitant]
     Active Substance: AMIODARONE
     Dosage: 200 MILLIGRAM
  62. DILTIAZEM [Concomitant]
     Active Substance: DILTIAZEM
     Dosage: 25 MG/5ML
  63. LACTULOSE [Concomitant]
     Active Substance: LACTULOSE
     Dosage: 10 GM/15ML
  64. TRAMADOL [Concomitant]
     Active Substance: TRAMADOL\TRAMADOL HYDROCHLORIDE
     Dosage: 50 MILLIGRAM

REACTIONS (20)
  - Blood glucose increased [Recovered/Resolved]
  - Deafness permanent [Not Recovered/Not Resolved]
  - Physical disability [Not Recovered/Not Resolved]
  - Disability [Not Recovered/Not Resolved]
  - Ear dryness [Not Recovered/Not Resolved]
  - Auditory disorder [Not Recovered/Not Resolved]
  - Tinnitus [Not Recovered/Not Resolved]
  - Weight decreased [Not Recovered/Not Resolved]
  - Therapy non-responder [Unknown]
  - Muscle spasms [Unknown]
  - Dry eye [Not Recovered/Not Resolved]
  - Pain [Not Recovered/Not Resolved]
  - Injury [Not Recovered/Not Resolved]
  - Anxiety [Not Recovered/Not Resolved]
  - Concomitant disease aggravated [Not Recovered/Not Resolved]
  - Discomfort [Not Recovered/Not Resolved]
  - Quality of life decreased [Not Recovered/Not Resolved]
  - Emotional distress [Not Recovered/Not Resolved]
  - Visual acuity reduced [Unknown]
  - Economic problem [Not Recovered/Not Resolved]

NARRATIVE: CASE EVENT DATE: 20211001
